FAERS Safety Report 7921391-0 (Version None)
Quarter: 2011Q4

REPORT INFORMATION
  Report Type: 
  Country: None (occurrence: None)
  Receive Date: 20111117
  Receipt Date: 20111115
  Transmission Date: 20120403
  Serious: Yes (Life-Threatening, Hospitalization)
  Sender: FDA-Public Use
  Company Number: ES-ABBOTT-11P-144-0868284-00

PATIENT
  Age: 48 Year
  Sex: Male

DRUGS (4)
  1. METAMIZOL [Concomitant]
     Indication: BILIARY COLIC
  2. CALCIPTRIOL MONOHYDRATE/BETAMETHASONE DIPROPIONATE [Concomitant]
     Indication: PSORIASIS
     Dosage: TOPICAL GEL- OCCASIONAL
     Route: 061
  3. HUMIRA [Suspect]
     Indication: PSORIASIS
     Route: 058
     Dates: start: 20110201
  4. GEMFIBROZIL [Concomitant]
     Indication: HYPERTRIGLYCERIDAEMIA

REACTIONS (3)
  - ACUTE MYELOID LEUKAEMIA [None]
  - FEBRILE NEUTROPENIA [None]
  - NEUTROPENIA [None]
